FAERS Safety Report 4989149-2 (Version None)
Quarter: 2006Q2

REPORT INFORMATION
  Report Type: 
  Country: None (occurrence: None)
  Receive Date: 20060425
  Receipt Date: 20060415
  Transmission Date: 20061013
  Serious: Yes (Other)
  Sender: FDA-Public Use
  Company Number: 2006051213

PATIENT
  Age: 19 Year
  Sex: Female
  Weight: 90.7194 kg

DRUGS (2)
  1. UNISOM [Suspect]
     Dosage: 9 LIQUIDGELS ONCE, ORAL
     Route: 048
     Dates: start: 20060415, end: 20060415
  2. ACETAMINOPHEN [Suspect]

REACTIONS (7)
  - APNOEA [None]
  - DRUG EXPOSURE DURING PREGNANCY [None]
  - HEART RATE DECREASED [None]
  - OVERDOSE [None]
  - PARTNER STRESS [None]
  - SOMNOLENCE [None]
  - SYNCOPE [None]
